FAERS Safety Report 18653427 (Version 2)
Quarter: 2021Q1

REPORT INFORMATION
  Report Type: Report from Study
  Country: None (occurrence: US)
  Receive Date: 20201222
  Receipt Date: 20210114
  Transmission Date: 20210419
  Serious: Yes (Hospitalization, Other)
  Sender: FDA-Public Use
  Company Number: US-ABBVIE-20K-163-3701520-00

PATIENT
  Age: 30 Year
  Sex: Male
  Weight: 43.58 kg

DRUGS (1)
  1. HUMIRA [Suspect]
     Active Substance: ADALIMUMAB
     Indication: CROHN^S DISEASE
     Route: 058
     Dates: start: 20201129

REACTIONS (6)
  - Abdominal pain upper [Recovered/Resolved]
  - Unevaluable event [Recovered/Resolved]
  - Intestinal obstruction [Recovered/Resolved]
  - Abdominal distension [Recovered/Resolved]
  - Gastritis [Recovered/Resolved]
  - Malaise [Unknown]

NARRATIVE: CASE EVENT DATE: 20201213
